FAERS Safety Report 13945978 (Version 1)
Quarter: 2017Q3

REPORT INFORMATION
  Report Type: Spontaneous
  Country: FR (occurrence: FR)
  Receive Date: 20170907
  Receipt Date: 20170907
  Transmission Date: 20171128
  Serious: Yes (Hospitalization)
  Sender: FDA-Public Use
  Company Number: FR-MERCK KGAA-2025713

PATIENT
  Age: 46 Year
  Sex: Female

DRUGS (2)
  1. NOVOTHYROX [Suspect]
     Active Substance: LEVOTHYROXINE SODIUM
     Indication: AUTOIMMUNE THYROIDITIS
     Dates: start: 201705
  2. VITAMIN D1 [Concomitant]

REACTIONS (13)
  - Muscle spasms [Unknown]
  - Asthenopia [Unknown]
  - Eye movement disorder [Unknown]
  - Hypertension [Unknown]
  - Dizziness [Unknown]
  - Chills [Unknown]
  - Tachycardia [Unknown]
  - Bronchitis [Unknown]
  - Presyncope [Unknown]
  - Pain in extremity [Unknown]
  - Cough [Unknown]
  - Palpitations [Unknown]
  - Headache [Recovering/Resolving]

NARRATIVE: CASE EVENT DATE: 2017
